FAERS Safety Report 8283260-9 (Version None)
Quarter: 2012Q2

REPORT INFORMATION
  Report Type: 
  Country: None (occurrence: None)
  Receive Date: 20120413
  Receipt Date: 20120404
  Transmission Date: 20120825
  Serious: Yes (Other)
  Sender: FDA-Public Use
  Company Number: US-ASTRAZENECA-2012SE21199

PATIENT
  Age: 70 Year
  Sex: Female
  Weight: 77.1 kg

DRUGS (3)
  1. ATENOLOL [Suspect]
     Route: 048
     Dates: start: 20120330
  2. ATENOLOL [Suspect]
     Indication: HYPERTENSION
     Route: 048
     Dates: end: 20120301
  3. ATENOLOL [Suspect]
     Route: 048
     Dates: start: 20120327

REACTIONS (4)
  - DIZZINESS [None]
  - MUSCLE DISORDER [None]
  - MYALGIA [None]
  - MALAISE [None]
